FAERS Safety Report 8392698-0 (Version None)
Quarter: 2012Q2

REPORT INFORMATION
  Report Type: 
  Country: None (occurrence: None)
  Receive Date: 20120529
  Receipt Date: 20120514
  Transmission Date: 20120825
  Serious: No
  Sender: FDA-Public Use
  Company Number: US-ASTRAZENECA-2011SE63798

PATIENT
  Age: 54 Year
  Sex: Female

DRUGS (1)
  1. SEROQUEL XR [Suspect]
     Route: 048

REACTIONS (5)
  - DRUG DISPENSING ERROR [None]
  - INTENTIONAL DRUG MISUSE [None]
  - MALAISE [None]
  - MEMORY IMPAIRMENT [None]
  - INSOMNIA [None]
